FAERS Safety Report 7053617-2 (Version None)
Quarter: 2010Q4

REPORT INFORMATION
  Report Type: 
  Country: None (occurrence: None)
  Receive Date: 20101020
  Receipt Date: 20101012
  Transmission Date: 20110411
  Serious: Yes (Other)
  Sender: FDA-Public Use
  Company Number: US-ROCHE-733879

PATIENT
  Age: 60 Year
  Sex: Female
  Weight: 68 kg

DRUGS (7)
  1. BONIVA [Suspect]
     Indication: OSTEOPOROSIS
     Route: 048
  2. BONIVA [Suspect]
     Route: 048
     Dates: start: 20090901
  3. ZESTRIL [Concomitant]
  4. ZOCOR [Concomitant]
  5. ASPIRIN [Concomitant]
  6. CITRACAL [Concomitant]
  7. CENTRUM SILVER [Concomitant]

REACTIONS (5)
  - CAROTID ARTERY STENOSIS [None]
  - CORONARY ARTERY STENOSIS [None]
  - DYSPEPSIA [None]
  - FLATULENCE [None]
  - PAIN IN JAW [None]
